FAERS Safety Report 24715061 (Version 1)
Quarter: 2024Q4

REPORT INFORMATION
  Report Type: Report from Study
  Country: CA (occurrence: CA)
  Receive Date: 20241210
  Receipt Date: 20241210
  Transmission Date: 20250115
  Serious: Yes (Hospitalization)
  Sender: ALEXION PHARMACEUTICALS
  Company Number: CA-AstraZeneca-CH-00741247A

PATIENT
  Age: 53 Year

DRUGS (23)
  1. ANIFROLUMAB [Suspect]
     Active Substance: ANIFROLUMAB
     Indication: Systemic lupus erythematosus
     Dosage: 300 MILLIGRAM, Q4W
  2. ANIFROLUMAB [Suspect]
     Active Substance: ANIFROLUMAB
     Dosage: 300 MILLIGRAM, Q4W
     Route: 042
  3. ANIFROLUMAB [Suspect]
     Active Substance: ANIFROLUMAB
     Dosage: 300 MILLIGRAM, Q4W
  4. ANIFROLUMAB [Suspect]
     Active Substance: ANIFROLUMAB
     Dosage: 300 MILLIGRAM, Q4W
     Route: 042
  5. AZATHIOPRINE [Concomitant]
     Active Substance: AZATHIOPRINE
     Dosage: UNK
     Route: 065
  6. AZATHIOPRINE [Concomitant]
     Active Substance: AZATHIOPRINE
     Dosage: UNK
     Route: 065
  7. LORATADINE [Concomitant]
     Active Substance: LORATADINE
     Route: 065
  8. LORATADINE [Concomitant]
     Active Substance: LORATADINE
     Route: 065
  9. PREDNISONE [Concomitant]
     Active Substance: PREDNISONE
     Route: 065
  10. PREDNISONE [Concomitant]
     Active Substance: PREDNISONE
     Route: 065
  11. ASPIRIN [Concomitant]
     Active Substance: ASPIRIN
     Dosage: UNK
  12. HYDROXYCHLOROQUINE [Concomitant]
     Active Substance: HYDROXYCHLOROQUINE
     Dosage: UNK
     Route: 065
  13. HYDROXYCHLOROQUINE [Concomitant]
     Active Substance: HYDROXYCHLOROQUINE
     Dosage: UNK
     Route: 065
  14. PANTOPRAZOLE [Concomitant]
     Active Substance: PANTOPRAZOLE
     Dosage: UNK
     Route: 065
  15. PANTOPRAZOLE [Concomitant]
     Active Substance: PANTOPRAZOLE
     Dosage: UNK
     Route: 065
  16. ROSUVASTATIN [Concomitant]
     Active Substance: ROSUVASTATIN
     Dosage: UNK
     Route: 065
  17. ROSUVASTATIN [Concomitant]
     Active Substance: ROSUVASTATIN
     Dosage: UNK
     Route: 065
  18. SYNTHROID [Concomitant]
     Active Substance: LEVOTHYROXINE SODIUM
     Dosage: UNK
     Route: 065
  19. SYNTHROID [Concomitant]
     Active Substance: LEVOTHYROXINE SODIUM
     Dosage: UNK
     Route: 065
  20. VITAMIN D NOS [Concomitant]
     Active Substance: CHOLECALCIFEROL\ERGOCALCIFEROL
     Dosage: UNK
     Route: 065
  21. VITAMIN D NOS [Concomitant]
     Active Substance: CHOLECALCIFEROL\ERGOCALCIFEROL
     Dosage: UNK
     Route: 065
  22. DICLOFENAC [Concomitant]
     Active Substance: DICLOFENAC
     Dosage: UNK
     Route: 065
  23. DICLOFENAC [Concomitant]
     Active Substance: DICLOFENAC
     Dosage: UNK
     Route: 065

REACTIONS (2)
  - Ankle fracture [Unknown]
  - Fall [Unknown]
